FAERS Safety Report 6533105-X (Version None)
Quarter: 2010Q1

REPORT INFORMATION
  Report Type: 
  Country: None (occurrence: None)
  Receive Date: 20100111
  Receipt Date: 20091230
  Transmission Date: 20100710
  Serious: Yes (Other)
  Sender: FDA-Public Use
  Company Number: GB-PFIZER INC-2009297231

PATIENT
  Age: 63 Year
  Sex: Male
  Weight: 71 kg

DRUGS (11)
  1. SUNITINIB MALATE [Suspect]
     Indication: METASTATIC RENAL CELL CARCINOMA
     Dosage: 37.5 MG, 1X/DAY
     Route: 048
     Dates: start: 20060330
  2. DRAPOLENE [Concomitant]
     Dosage: UNK
     Route: 061
     Dates: start: 20071213
  3. GELCLAIR [Concomitant]
     Dosage: UNK
     Route: 048
     Dates: start: 20071210
  4. AMLODIPINE [Concomitant]
     Dosage: UNK
     Route: 048
     Dates: start: 20080101
  5. DOXAZOSIN [Concomitant]
     Dosage: UNK
     Route: 048
     Dates: start: 20080828
  6. ANUGESIC [Concomitant]
     Dosage: UNK
     Route: 061
     Dates: start: 20080515
  7. LIDOCAINE [Concomitant]
     Dosage: UNK
     Route: 061
     Dates: start: 20080110
  8. COLPERMIN [Concomitant]
     Dosage: UNK
     Route: 048
     Dates: start: 20070409
  9. LEVOTHYROXINE SODIUM [Concomitant]
     Dosage: UNK
     Route: 048
     Dates: start: 20070613
  10. IMODIUM [Concomitant]
     Dosage: UNK
     Route: 048
     Dates: start: 20070923
  11. ATENOLOL [Concomitant]
     Dosage: UNK
     Route: 048
     Dates: start: 20030101

REACTIONS (1)
  - ANGINA PECTORIS [None]
